FAERS Safety Report 10010164 (Version 1)
Quarter: 2014Q1

REPORT INFORMATION
  Report Type: Spontaneous
  Country: US (occurrence: US)
  Receive Date: 20140312
  Receipt Date: 20140312
  Transmission Date: 20141002
  Serious: No
  Sender: FDA-Public Use
  Company Number: US-INCYTE CORPORATION-2013IN001824

PATIENT
  Sex: Female

DRUGS (8)
  1. JAKAFI [Suspect]
     Indication: MYELOFIBROSIS
     Dosage: 20 MG, BID
     Route: 048
     Dates: start: 20130521
  2. ASPIRIN [Concomitant]
     Dosage: 81 MG
  3. VITAMIN D3 [Concomitant]
  4. FOLIC ACID [Concomitant]
  5. B12 INJECTION [Concomitant]
  6. CYMBALTA [Concomitant]
  7. FIBERCON [Concomitant]
  8. REQUIP [Concomitant]

REACTIONS (4)
  - Neuropathy peripheral [Unknown]
  - Bone pain [Unknown]
  - Myalgia [Unknown]
  - Cyst [Unknown]
